FAERS Safety Report 18849624 (Version 1)
Quarter: 2021Q1

REPORT INFORMATION
  Report Type: Spontaneous
  Country: FR (occurrence: FR)
  Receive Date: 20210204
  Receipt Date: 20210204
  Transmission Date: 20210419
  Serious: Yes (Other)
  Sender: FDA-Public Use
  Company Number: FR-ALLERGAN-2105034US

PATIENT
  Sex: Male
  Weight: 69 kg

DRUGS (1)
  1. ESCITALOPRAM OXALATE ? BP [Suspect]
     Active Substance: ESCITALOPRAM OXALATE
     Indication: DEPRESSION
     Route: 048
     Dates: start: 20191212, end: 20200713

REACTIONS (5)
  - Face oedema [Recovered/Resolved]
  - Hallucination, visual [Recovered/Resolved]
  - Confusional state [Recovered/Resolved]
  - Irregular sleep wake rhythm disorder [Recovered/Resolved]
  - Oedema peripheral [Recovered/Resolved]

NARRATIVE: CASE EVENT DATE: 20200713
